FAERS Safety Report 14825561 (Version 2)
Quarter: 2018Q2

REPORT INFORMATION
  Report Type: Spontaneous
  Country: JP (occurrence: JP)
  Receive Date: 20180430
  Receipt Date: 20180509
  Transmission Date: 20180711
  Serious: Yes (Other)
  Sender: FDA-Public Use
  Company Number: JP-ORION CORPORATION ORION PHARMA-ENT 2018-0048

PATIENT
  Sex: Male

DRUGS (9)
  1. NEUPRO [Concomitant]
     Active Substance: ROTIGOTINE
     Dosage: STRENGTH: 13.5 MG
     Route: 065
  2. EXCEGRAN [Concomitant]
     Active Substance: ZONISAMIDE
     Dosage: STRENGTH: 100 MG, 1 TABLET BEFORE BEDTIME
     Route: 065
  3. SYMMETREL [Suspect]
     Active Substance: AMANTADINE HYDROCHLORIDE
     Indication: PARKINSON^S DISEASE
     Dosage: AFTER BREAKFAST
     Route: 048
  4. DOPACOL [Concomitant]
     Active Substance: CARBIDOPA\LEVODOPA
     Dosage: 2.5 TABLETS DIVIDED IN 3 DOSES AS 1-1-0.5
     Route: 065
  5. COMTAN [Suspect]
     Active Substance: ENTACAPONE
     Indication: PARKINSON^S DISEASE
     Dosage: STRENGTH: 100 MG
     Route: 048
  6. FP-OD [Concomitant]
     Active Substance: SELEGILINE HYDROCHLORIDE
     Dosage: STRENGTH: 2.5 MG, THREE 2.5-MG TABLETS DIVIDED IN 2 DOSES AS 2-1-0
     Route: 065
  7. MENESIT [Concomitant]
     Active Substance: CARBIDOPA\LEVODOPA
     Dosage: 3 TABLETS DIVIDED IN 3 DOSES, AFTER EVERY MEAL
     Route: 065
  8. AROTINOLOL HYDROCHLORIDE [Concomitant]
     Active Substance: AROTINOLOL HYDROCHLORIDE
     Dosage: 1 TABLET AFTER BREAKFAST
     Route: 065
  9. REQUIP [Concomitant]
     Active Substance: ROPINIROLE HYDROCHLORIDE
     Route: 065

REACTIONS (5)
  - Parkinson^s disease [Unknown]
  - Initial insomnia [Unknown]
  - Middle insomnia [Unknown]
  - Posture abnormal [Unknown]
  - Poor quality sleep [Unknown]
